FAERS Safety Report 26064947 (Version 1)
Quarter: 2025Q4

REPORT INFORMATION
  Report Type: Spontaneous
  Country: GB (occurrence: GB)
  Receive Date: 20251119
  Receipt Date: 20251119
  Transmission Date: 20260118
  Serious: Yes (Other)
  Sender: PFIZER
  Company Number: None

PATIENT
  Age: 68 Year
  Sex: Female
  Weight: 68 kg

DRUGS (4)
  1. METHYLPREDNISOLONE [Suspect]
     Active Substance: METHYLPREDNISOLONE
     Indication: Giant cell arteritis
     Dosage: UNK
     Dates: start: 20240814, end: 20240817
  2. CITALOPRAM [Concomitant]
     Active Substance: CITALOPRAM
     Dosage: UNK
  3. COCODAMOL [Concomitant]
     Active Substance: ACETAMINOPHEN\CODEINE PHOSPHATE
     Dosage: UNK
  4. ATORVASTATIN [Concomitant]
     Active Substance: ATORVASTATIN
     Dosage: UNK

REACTIONS (3)
  - Psychotic disorder [Recovered/Resolved]
  - Agitation [Unknown]
  - Insomnia [Unknown]

NARRATIVE: CASE EVENT DATE: 20240816
